FAERS Safety Report 8990847 (Version 1)
Quarter: 2012Q4

REPORT INFORMATION
  Report Type: Report from Study
  Country: DE (occurrence: DE)
  Receive Date: 20121231
  Receipt Date: 20121231
  Transmission Date: 20130627
  Serious: Yes (Hospitalization)
  Sender: FDA-Public Use
  Company Number: PHHO2012DE018572

PATIENT
  Age: 73 Year
  Sex: Female
  Weight: 60 kg

DRUGS (2)
  1. EVEROLIMUS [Suspect]
     Indication: BREAST CANCER METASTATIC
     Dosage: 10 mg, QD
     Route: 048
     Dates: start: 20120912, end: 20121224
  2. EXEMESTANE [Suspect]
     Indication: BREAST CANCER
     Dosage: 25 mg, QD
     Route: 048
     Dates: start: 20120912, end: 20121224

REACTIONS (1)
  - Jaundice [Unknown]
